FAERS Safety Report 5623239-6 (Version None)
Quarter: 2008Q1

REPORT INFORMATION
  Report Type: 
  Country: None (occurrence: None)
  Receive Date: 20080212
  Receipt Date: 20080201
  Transmission Date: 20080703
  Serious: Yes (Other)
  Sender: FDA-Public Use
  Company Number: US-JNJFOC-20080200271

PATIENT
  Age: 7 Year
  Sex: Female
  Weight: 36.8 kg

DRUGS (3)
  1. REMICADE [Suspect]
     Route: 042
     Dates: start: 20080103, end: 20080116
  2. REMICADE [Suspect]
     Indication: JUVENILE ARTHRITIS
     Route: 042
     Dates: start: 20080103, end: 20080116
  3. STEROID [Concomitant]

REACTIONS (5)
  - CHEST PAIN [None]
  - COUGH [None]
  - DYSPNOEA EXERTIONAL [None]
  - FLUSHING [None]
  - TYPE IV HYPERSENSITIVITY REACTION [None]
